FAERS Safety Report 14752251 (Version 1)
Quarter: 2018Q2

REPORT INFORMATION
  Report Type: Spontaneous
  Country: US (occurrence: US)
  Receive Date: 20180412
  Receipt Date: 20180412
  Transmission Date: 20180711
  Serious: No
  Sender: FDA-Public Use
  Company Number: US-009507513-1804USA005295

PATIENT
  Sex: Female

DRUGS (15)
  1. MAGNESIUM (UNSPECIFIED) [Concomitant]
     Active Substance: MAGNESIUM
     Indication: STATUS MIGRAINOSUS
     Dosage: UNK
  2. ERGOTAMINE TARTRATE. [Suspect]
     Active Substance: ERGOTAMINE TARTRATE
     Indication: STATUS MIGRAINOSUS
     Dosage: UNK
  3. ZOLMITRIPTAN. [Suspect]
     Active Substance: ZOLMITRIPTAN
     Indication: STATUS MIGRAINOSUS
     Dosage: UNK
  4. RIBOFLAVIN [Concomitant]
     Active Substance: RIBOFLAVIN
     Indication: STATUS MIGRAINOSUS
     Dosage: UNK
  5. NARATRIPTAN HYDROCHLORIDE. [Suspect]
     Active Substance: NARATRIPTAN HYDROCHLORIDE
     Indication: STATUS MIGRAINOSUS
     Dosage: UNK
  6. ASPIRIN. [Concomitant]
     Active Substance: ASPIRIN
     Indication: STATUS MIGRAINOSUS
     Dosage: UNK
  7. ELETRIPTAN. [Suspect]
     Active Substance: ELETRIPTAN
     Indication: STATUS MIGRAINOSUS
     Dosage: UNK
  8. SUMATRIPTAN. [Concomitant]
     Active Substance: SUMATRIPTAN
     Indication: STATUS MIGRAINOSUS
     Dosage: UNK
  9. NORTRIPTYLINE HYDROCHLORIDE. [Suspect]
     Active Substance: NORTRIPTYLINE HYDROCHLORIDE
     Indication: STATUS MIGRAINOSUS
     Dosage: UNK
  10. FLUOXETINE [Suspect]
     Active Substance: FLUOXETINE HYDROCHLORIDE
     Indication: STATUS MIGRAINOSUS
     Dosage: UNK
  11. MAXALT [Suspect]
     Active Substance: RIZATRIPTAN BENZOATE
     Indication: STATUS MIGRAINOSUS
     Dosage: UNK
     Route: 048
  12. NAPROXEN. [Suspect]
     Active Substance: NAPROXEN
     Indication: STATUS MIGRAINOSUS
     Dosage: UNK
  13. PERIPHERAL OPIOID RECEPTOR ANTAGONIST (UNSPECIFIED) [Concomitant]
     Indication: STATUS MIGRAINOSUS
     Dosage: UNK
  14. IBUPROFEN. [Suspect]
     Active Substance: IBUPROFEN
     Indication: STATUS MIGRAINOSUS
     Dosage: UNK
  15. TOPIRAMATE. [Concomitant]
     Active Substance: TOPIRAMATE
     Indication: STATUS MIGRAINOSUS
     Dosage: UNK

REACTIONS (1)
  - Drug ineffective [Unknown]
